FAERS Safety Report 7018023-5 (Version None)
Quarter: 2010Q3

REPORT INFORMATION
  Report Type: 
  Country: None (occurrence: None)
  Receive Date: 20100927
  Receipt Date: 20100927
  Transmission Date: 20110219
  Serious: Yes (Life-Threatening, Other)
  Sender: FDA-Public Use
  Company Number: None

PATIENT
  Sex: Female
  Weight: 77.1115 kg

DRUGS (1)
  1. YAZ [Suspect]
     Indication: MENORRHAGIA
     Dosage: 1 TABLET A DAY DAILY PO
     Route: 048
     Dates: end: 20090911

REACTIONS (2)
  - EMOTIONAL DISORDER [None]
  - SUICIDAL IDEATION [None]
